FAERS Safety Report 4991348-0 (Version None)
Quarter: 2006Q2

REPORT INFORMATION
  Report Type: 
  Country: None (occurrence: None)
  Receive Date: 20060501
  Receipt Date: 20060501
  Transmission Date: 20061013
  Serious: Yes (Hospitalization, Other)
  Sender: FDA-Public Use
  Company Number: None

PATIENT
  Sex: Male
  Weight: 101.36 kg

DRUGS (4)
  1. ELOXATIN [Suspect]
     Indication: COLORECTAL CANCER
     Dosage: 188 MG
     Dates: start: 20060411, end: 20060411
  2. LEUCOVORIN CALCIUM [Suspect]
     Dosage: 884 MG
     Dates: start: 20060411, end: 20060411
  3. FLUOROURACIL [Suspect]
     Dosage: 12336 MG
     Dates: start: 20060411, end: 20060413
  4. BEVACIZUMAB (RHUMAB VEGF) [Suspect]
     Dosage: 507 MG
     Dates: start: 20060411, end: 20060411

REACTIONS (6)
  - ABDOMINAL PAIN [None]
  - DECREASED APPETITE [None]
  - ILEUS [None]
  - NAUSEA [None]
  - SMALL INTESTINAL OBSTRUCTION [None]
  - VOMITING [None]
